FAERS Safety Report 16266498 (Version 1)
Quarter: 2019Q2

REPORT INFORMATION
  Report Type: Report from Study
  Country: US (occurrence: US)
  Receive Date: 20190502
  Receipt Date: 20190502
  Transmission Date: 20190711
  Serious: Yes (Other)
  Sender: FDA-Public Use
  Company Number: US-SA-2018SA178536

PATIENT
  Age: 56 Year
  Sex: Male

DRUGS (2)
  1. AGALSIDASE BETA [Suspect]
     Active Substance: AGALSIDASE BETA
     Dosage: DOSE/UNIT:65, FREQUENCY: Q2
     Route: 041
  2. AGALSIDASE BETA [Suspect]
     Active Substance: AGALSIDASE BETA
     Indication: FABRY^S DISEASE
     Dosage: DOSE/UNIT:65, FREQUENCY: Q2
     Route: 041
     Dates: start: 20170626

REACTIONS (4)
  - Skin bacterial infection [Not Recovered/Not Resolved]
  - Immunosuppression [Not Recovered/Not Resolved]
  - Rash [Not Recovered/Not Resolved]
  - Back disorder [Not Recovered/Not Resolved]
